FAERS Safety Report 5286452-6 (Version None)
Quarter: 2007Q2

REPORT INFORMATION
  Report Type: 
  Country: None (occurrence: None)
  Receive Date: 20070404
  Receipt Date: 20070329
  Transmission Date: 20071010
  Serious: Yes (Other)
  Sender: FDA-Public Use
  Company Number: DE-JNJFOC-20070306925

PATIENT
  Sex: Male

DRUGS (1)
  1. ITRACOL [Suspect]
     Indication: ONYCHOMYCOSIS
     Route: 048

REACTIONS (3)
  - FORMICATION [None]
  - PAIN IN EXTREMITY [None]
  - SWELLING [None]
